FAERS Safety Report 8415306-9 (Version None)
Quarter: 2012Q2

REPORT INFORMATION
  Report Type: 
  Country: None (occurrence: None)
  Receive Date: 20120323
  Receipt Date: 20111205
  Transmission Date: 20120825
  Serious: Yes (Other)
  Sender: FDA-Public Use
  Company Number: 163-21880-11120976

PATIENT
  Age: 88 Year
  Sex: Female
  Weight: 70.7611 kg

DRUGS (1)
  1. REVLIMID [Suspect]
     Indication: MULTIPLE MYELOMA
     Dosage: 5 MG, EVERY OTHER DAY FOR 21 DAYS 7 DAYS OFF, PO
     Route: 048
     Dates: start: 20100407, end: 20111101

REACTIONS (1)
  - ANAEMIA [None]
